FAERS Safety Report 9780977 (Version 4)
Quarter: 2014Q3

REPORT INFORMATION
  Report Type: Report from Study
  Country: JP (occurrence: JP)
  Receive Date: 20131224
  Receipt Date: 20140811
  Transmission Date: 20150326
  Serious: Yes (Death, Hospitalization, Other)
  Sender: FDA-Public Use
  Company Number: JP-SA-2013SA132698

PATIENT
  Age: 30 Year
  Sex: Female
  Weight: 56.3 kg

DRUGS (15)
  1. LASIX [Concomitant]
     Active Substance: FUROSEMIDE
     Indication: OEDEMA
     Dates: start: 20130509, end: 20130613
  2. VALTREX [Concomitant]
     Active Substance: VALACYCLOVIR HYDROCHLORIDE
     Indication: ANTIVIRAL PROPHYLAXIS
     Dates: start: 20130509, end: 20130719
  3. THYMOGLOBULINE [Suspect]
     Active Substance: LAPINE T-LYMPHOCYTE IMMUNE GLOBULIN
     Indication: BONE MARROW CONDITIONING REGIMEN
     Route: 042
     Dates: start: 20130603, end: 20130604
  4. FRAGMIN [Concomitant]
     Active Substance: DALTEPARIN SODIUM
     Indication: PROPHYLAXIS
     Dates: start: 20130529, end: 20130708
  5. BIOFERMIN R [Concomitant]
     Active Substance: BACILLUS SUBTILIS\LACTOBACILLUS ACIDOPHILUS\STREPTOCOCCUS FAECAIS
     Indication: VOMITING
     Dates: end: 20130619
  6. MAXIPIME [Concomitant]
     Active Substance: CEFEPIME HYDROCHLORIDE
     Indication: PROPHYLAXIS
     Dates: start: 20130520, end: 20130607
  7. MORPHINE HYDROCHLORIDE [Concomitant]
     Active Substance: MORPHINE HYDROCHLORIDE
     Indication: STOMATITIS
     Dates: start: 20130526, end: 20130622
  8. FLUDARA [Concomitant]
     Active Substance: FLUDARABINE PHOSPHATE
     Indication: BONE MARROW CONDITIONING REGIMEN
     Dates: start: 20130530, end: 20130603
  9. SOL-MELCORT [Concomitant]
     Active Substance: METHYLPREDNISOLONE SODIUM SUCCINATE
     Indication: PROPHYLAXIS
     Dates: start: 20130603, end: 20130705
  10. TAKEPRON [Concomitant]
     Active Substance: LANSOPRAZOLE
     Indication: GASTROOESOPHAGEAL REFLUX DISEASE
  11. GRANISETRON [Concomitant]
     Active Substance: GRANISETRON
     Indication: VOMITING
     Dates: start: 20130530, end: 20130603
  12. FUNGUARD [Concomitant]
     Active Substance: MICAFUNGIN SODIUM
     Indication: ANTIFUNGAL PROPHYLAXIS
     Dates: start: 20130530, end: 20130613
  13. PROGRAF [Concomitant]
     Active Substance: TACROLIMUS\TACROLIMUS ANHYDROUS
     Indication: PROPHYLAXIS AGAINST GRAFT VERSUS HOST DISEASE
     Dates: start: 20130603, end: 20131120
  14. URSO [Concomitant]
     Active Substance: URSODIOL
     Indication: DRUG-INDUCED LIVER INJURY
  15. EMEND [Concomitant]
     Active Substance: APREPITANT
     Indication: VOMITING
     Dates: start: 20130530, end: 20130603

REACTIONS (3)
  - Acute lymphocytic leukaemia recurrent [Not Recovered/Not Resolved]
  - Graft versus host disease [Fatal]
  - Febrile neutropenia [Recovering/Resolving]

NARRATIVE: CASE EVENT DATE: 20130603
